FAERS Safety Report 9730379 (Version 2)
Quarter: 2013Q4

REPORT INFORMATION
  Report Type: Report from Study
  Country: IL (occurrence: IL)
  Receive Date: 20131202
  Receipt Date: 20131213
  Transmission Date: 20140711
  Serious: Yes (Other)
  Sender: FDA-Public Use
  Company Number: PHHY2013IL139277

PATIENT
  Age: 50 Year
  Sex: Female
  Weight: 61.5 kg

DRUGS (1)
  1. EVEROLIMUS [Suspect]
     Indication: ANGIOMYOLIPOMA
     Dosage: 10 MG, QD
     Route: 048
     Dates: start: 20130502, end: 20131127

REACTIONS (2)
  - Nephrotic syndrome [Unknown]
  - Proteinuria [Not Recovered/Not Resolved]
